FAERS Safety Report 25890102 (Version 1)
Quarter: 2025Q4

REPORT INFORMATION
  Report Type: Report from Study
  Country: BR (occurrence: BR)
  Receive Date: 20251007
  Receipt Date: 20251007
  Transmission Date: 20260118
  Serious: Yes (Other)
  Sender: RANBAXY
  Company Number: BR-SUN PHARMACEUTICAL INDUSTRIES INC-2025R1-529989

PATIENT
  Age: 76 Year
  Sex: Female

DRUGS (6)
  1. PREDNISONE [Suspect]
     Active Substance: PREDNISONE
     Indication: Polymyalgia rheumatica
     Dosage: 10 MILLIGRAM, DAILY
     Route: 065
     Dates: start: 20090301
  2. PREDNISONE [Suspect]
     Active Substance: PREDNISONE
     Indication: Giant cell arteritis
  3. METHOTREXATE [Suspect]
     Active Substance: METHOTREXATE
     Indication: Giant cell arteritis
     Dosage: UNK
     Route: 065
  4. METHOTREXATE [Suspect]
     Active Substance: METHOTREXATE
     Indication: Polymyalgia rheumatica
  5. ETANERCEPT [Suspect]
     Active Substance: ETANERCEPT
     Indication: Polymyalgia rheumatica
     Dosage: 50 MILLIGRAM, WEEKLY
     Route: 065
     Dates: start: 200901, end: 201001
  6. ETANERCEPT [Suspect]
     Active Substance: ETANERCEPT
     Indication: Giant cell arteritis

REACTIONS (4)
  - Oesophageal achalasia [Unknown]
  - American trypanosomiasis [Unknown]
  - Cardiomyopathy [Unknown]
  - Drug ineffective [Unknown]

NARRATIVE: CASE EVENT DATE: 20110101
